FAERS Safety Report 11307670 (Version 1)
Quarter: 2015Q3

REPORT INFORMATION
  Report Type: Spontaneous
  Country: US (occurrence: US)
  Receive Date: 20150724
  Receipt Date: 20150724
  Transmission Date: 20151125
  Serious: Yes (Death, Hospitalization, Other)
  Sender: FDA-Public Use
  Company Number: US-CIPLA LTD.-2015US05894

PATIENT

DRUGS (1)
  1. AMLODIPINE BESYLATE/BENAZEPRIL HYDROCHLORIDE [Suspect]
     Active Substance: AMLODIPINE BESYLATE\BENAZEPRIL HYDROCHLORIDE
     Dosage: 10 TO 45 MG AMLODIPINE WITH 40 TO 180 MG BENAZEPRIL
     Route: 065

REACTIONS (12)
  - Tachycardia [Unknown]
  - Accidental overdose [Unknown]
  - Oxygen supplementation [Unknown]
  - Bradycardia [Unknown]
  - Condition aggravated [Unknown]
  - Unresponsive to stimuli [Unknown]
  - Apnoea [Unknown]
  - Cyanosis [Unknown]
  - Blood glucose increased [Unknown]
  - Lethargy [Unknown]
  - Vomiting [Unknown]
  - Pulmonary oedema [Fatal]
